FAERS Safety Report 7974197-0 (Version None)
Quarter: 2011Q4

REPORT INFORMATION
  Report Type: 
  Country: None (occurrence: None)
  Receive Date: 20111213
  Receipt Date: 20111007
  Transmission Date: 20120403
  Serious: No
  Sender: FDA-Public Use
  Company Number: US-BAYER-2011-097941

PATIENT
  Age: 94 Year
  Sex: Female
  Weight: 62 kg

DRUGS (2)
  1. NAPROXEN (ALEVE) [Suspect]
     Indication: ARTHRITIS
     Dosage: 1 DF, ONCE
     Route: 048
     Dates: start: 20111007, end: 20111007
  2. LOTREL [Concomitant]

REACTIONS (1)
  - FOREIGN BODY [None]
